FAERS Safety Report 11520664 (Version 4)
Quarter: 2015Q4

REPORT INFORMATION
  Report Type: Report from Study
  Country: AU (occurrence: AU)
  Receive Date: 20150918
  Receipt Date: 20151106
  Transmission Date: 20160304
  Serious: Yes (Hospitalization)
  Sender: FDA-Public Use
  Company Number: AU-BIOGENIDEC-2015BI127197

PATIENT
  Age: 50 Year
  Sex: Female

DRUGS (3)
  1. PLEGRIDY [Suspect]
     Active Substance: PEGINTERFERON BETA-1A
     Indication: MULTIPLE SCLEROSIS
     Route: 058
     Dates: start: 2015, end: 2015
  2. PLEGRIDY [Suspect]
     Active Substance: PEGINTERFERON BETA-1A
     Indication: MULTIPLE SCLEROSIS
     Route: 058
     Dates: start: 2015, end: 2015
  3. PLEGRIDY [Suspect]
     Active Substance: PEGINTERFERON BETA-1A
     Indication: MULTIPLE SCLEROSIS
     Route: 058
     Dates: start: 20150807, end: 2015

REACTIONS (9)
  - Hemiparesis [Not Recovered/Not Resolved]
  - Fatigue [Recovered/Resolved]
  - Injection site reaction [Recovered/Resolved]
  - Nausea [Not Recovered/Not Resolved]
  - Malaise [Unknown]
  - Pain [Recovered/Resolved]
  - Vertigo [Not Recovered/Not Resolved]
  - Multiple sclerosis relapse [Recovered/Resolved]
  - Emotional distress [Unknown]

NARRATIVE: CASE EVENT DATE: 20150918
